FAERS Safety Report 9438568 (Version 2)
Quarter: 2013Q4

REPORT INFORMATION
  Report Type: Spontaneous
  Country: US (occurrence: US)
  Receive Date: 20130802
  Receipt Date: 20131107
  Transmission Date: 20140711
  Serious: Yes (Death, Hospitalization, Disabling, Other)
  Sender: FDA-Public Use
  Company Number: US-BAYER-2013-090940

PATIENT
  Age: 71 Year
  Sex: Male

DRUGS (7)
  1. NEXAVAR [Suspect]
     Indication: HEPATIC CANCER
     Dosage: 200 MG, BID
     Dates: start: 20121218, end: 20130104
  2. PROTONIX [Concomitant]
     Indication: ULCER
     Dosage: 40 MG, QD
     Dates: start: 20120827
  3. PLAVIX [Concomitant]
     Dosage: 75 MG, QD
     Dates: start: 20120827, end: 20121230
  4. LASIX [Concomitant]
     Dosage: 20 MG, QD
     Dates: start: 20120827
  5. COREG [Concomitant]
     Dosage: 3 DF, BID
     Dates: start: 20120827
  6. ZOFRAN [Concomitant]
     Indication: NAUSEA
     Dosage: 4 MG, PRN
  7. GAS X [Concomitant]
     Indication: FLATULENCE
     Dosage: 125 MG, PRN

REACTIONS (12)
  - Cardio-respiratory arrest [Fatal]
  - Hepatic cancer [Fatal]
  - Dyspnoea [Not Recovered/Not Resolved]
  - Activities of daily living impaired [None]
  - General physical health deterioration [None]
  - Weight decreased [None]
  - Nausea [None]
  - Vomiting [None]
  - Abdominal pain upper [None]
  - Decreased appetite [None]
  - Dizziness [None]
  - Fatigue [None]
